FAERS Safety Report 4808280-5 (Version None)
Quarter: 2005Q4

REPORT INFORMATION
  Report Type: 
  Country: None (occurrence: None)
  Receive Date: 20051021
  Receipt Date: 20010726
  Transmission Date: 20060501
  Serious: No
  Sender: FDA-Public Use
  Company Number: EWC010727842

PATIENT
  Age: 78 Year
  Sex: Female
  Weight: 62 kg

DRUGS (3)
  1. ZYPREXA [Suspect]
     Indication: SCHIZOPHRENIA
     Dosage: 20 MG/DAY
     Dates: start: 20011210, end: 20011219
  2. CLOPIXOL (ZUCLOPENTHIXOL DECANOATE) [Concomitant]
  3. AKINETON [Concomitant]

REACTIONS (2)
  - PETECHIAE [None]
  - PURPURA [None]
